FAERS Safety Report 4466087-5 (Version None)
Quarter: 2004Q4

REPORT INFORMATION
  Report Type: 
  Country: None (occurrence: None)
  Receive Date: 20041005
  Receipt Date: 20040928
  Transmission Date: 20050328
  Serious: Yes (Hospitalization)
  Sender: FDA-Public Use
  Company Number: FR-BRISTOL-MYERS SQUIBB COMPANY-12714523

PATIENT
  Age: 62 Year
  Sex: Male

DRUGS (4)
  1. ELISOR TABS [Suspect]
     Indication: DYSLIPIDAEMIA
     Route: 048
     Dates: start: 20020918, end: 20040615
  2. ZIAGEN [Concomitant]
     Indication: HIV INFECTION
     Dates: start: 19990526
  3. VIDEX [Concomitant]
     Indication: HIV INFECTION
     Dates: start: 19991130
  4. SUSTIVA [Concomitant]
     Indication: HIV INFECTION
     Dates: start: 20030616

REACTIONS (2)
  - GENERAL PHYSICAL HEALTH DETERIORATION [None]
  - PNEUMONIA [None]
